FAERS Safety Report 18350309 (Version 1)
Quarter: 2020Q4

REPORT INFORMATION
  Report Type: Spontaneous
  Country: US (occurrence: US)
  Receive Date: 20201006
  Receipt Date: 20201006
  Transmission Date: 20210114
  Serious: No
  Sender: FDA-Public Use
  Company Number: US-MILLICENT HOLDINGS LTD.-MILL20200989

PATIENT
  Sex: Female

DRUGS (1)
  1. INTRAROSA [Suspect]
     Active Substance: PRASTERONE
     Indication: ATROPHIC VULVOVAGINITIS
     Dosage: 6.5 MG
     Route: 067
     Dates: start: 202008

REACTIONS (9)
  - Dysuria [Recovering/Resolving]
  - Pelvic pain [Recovering/Resolving]
  - Urethral pain [Recovering/Resolving]
  - Urethritis noninfective [Recovering/Resolving]
  - Pollakiuria [Recovering/Resolving]
  - Off label use [Recovering/Resolving]
  - Urethral disorder [Recovering/Resolving]
  - Vaginal discharge [Recovering/Resolving]
  - Drug ineffective for unapproved indication [Recovering/Resolving]
